FAERS Safety Report 10190760 (Version 1)
Quarter: 2014Q2

REPORT INFORMATION
  Report Type: Spontaneous
  Country: US (occurrence: US)
  Receive Date: 20140523
  Receipt Date: 20140523
  Transmission Date: 20141212
  Serious: Yes (Other)
  Sender: FDA-Public Use
  Company Number: US-ROCHE-1405655

PATIENT
  Sex: Male

DRUGS (8)
  1. TARCEVA [Suspect]
     Indication: LUNG NEOPLASM MALIGNANT
     Route: 048
     Dates: start: 201402
  2. KLONOPIN [Suspect]
     Indication: PRODUCT USED FOR UNKNOWN INDICATION
     Route: 065
  3. LAMOTRIGINE [Concomitant]
     Route: 065
     Dates: start: 20140506
  4. VENLAFAXINE [Concomitant]
     Route: 065
     Dates: start: 20140506
  5. LAMICTAL [Concomitant]
     Route: 065
     Dates: start: 20140224
  6. EFFEXOR [Concomitant]
     Route: 065
     Dates: start: 20140224
  7. XANAX [Concomitant]
     Route: 065
     Dates: start: 20140224
  8. OXYCODONE [Concomitant]
     Route: 065

REACTIONS (3)
  - Skin exfoliation [Unknown]
  - Skin exfoliation [Unknown]
  - Acne [Unknown]
